FAERS Safety Report 10533709 (Version 1)
Quarter: 2014Q4

REPORT INFORMATION
  Report Type: Spontaneous
  Country: FR (occurrence: None)
  Receive Date: 20141020
  Receipt Date: 20141020
  Transmission Date: 20150529
  Serious: Yes (Hospitalization)
  Sender: FDA-Public Use
  Company Number: SPO8410

PATIENT
  Age: 8 Year
  Sex: Female

DRUGS (9)
  1. CEFTAZIDIME. [Suspect]
     Active Substance: CEFTAZIDIME
     Dates: start: 20140722, end: 20140727
  2. PROGRAF [Concomitant]
     Active Substance: TACROLIMUS\TACROLIMUS ANHYDROUS
  3. AZITHROMYCIN [Suspect]
     Active Substance: AZITHROMYCIN ANHYDROUS
     Dates: start: 20140709, end: 20140716
  4. CELLCEPT [Concomitant]
     Active Substance: MYCOPHENOLATE MOFETIL\MYCOPHENOLATE MOFETIL HYDROCHLORIDE
  5. METRONIDAZOLE. [Suspect]
     Active Substance: METRONIDAZOLE
     Dates: start: 20140722, end: 20140725
  6. CERTICAN [Concomitant]
     Active Substance: EVEROLIMUS
  7. AMIKACIN [Suspect]
     Active Substance: AMIKACIN
     Dates: start: 20140722, end: 20140725
  8. VANCOMYCIN [Suspect]
     Active Substance: VANCOMYCIN
     Dates: start: 20140725, end: 20140803
  9. XIFAXAN [Suspect]
     Active Substance: RIFAXIMIN
     Indication: CRYPTOSPORIDIOSIS INFECTION
     Route: 048
     Dates: start: 20140717, end: 20140805

REACTIONS (2)
  - Cholestasis [None]
  - Off label use [None]

NARRATIVE: CASE EVENT DATE: 20140717
